FAERS Safety Report 5935452-9 (Version None)
Quarter: 2008Q4

REPORT INFORMATION
  Report Type: 
  Country: None (occurrence: None)
  Receive Date: 20081030
  Receipt Date: 20081001
  Transmission Date: 20090506
  Serious: No
  Sender: FDA-Public Use
  Company Number: US-BAYER-200810915BCC

PATIENT
  Age: 69 Year
  Sex: Female
  Weight: 59 kg

DRUGS (5)
  1. ALEVE (CAPLET) [Suspect]
     Indication: ARTHRITIS
     Dosage: TOTAL DAILY DOSE: 440 MG  UNIT DOSE: 220 MG
     Route: 048
     Dates: start: 20071101, end: 20080201
  2. ALEVE (CAPLET) [Suspect]
     Dosage: TOTAL DAILY DOSE: 880 MG  UNIT DOSE: 220 MG
     Route: 048
     Dates: start: 20080201
  3. SYNTHROID [Concomitant]
  4. PRILOSEC [Concomitant]
  5. BENADRYL [Concomitant]

REACTIONS (4)
  - ABDOMINAL DISTENSION [None]
  - DYSPHAGIA [None]
  - JOINT SWELLING [None]
  - OEDEMA PERIPHERAL [None]
